FAERS Safety Report 9215083 (Version 1)
Quarter: 2013Q2

REPORT INFORMATION
  Report Type: Spontaneous
  Country: DE (occurrence: DE)
  Receive Date: 20130405
  Receipt Date: 20130405
  Transmission Date: 20140414
  Serious: Yes (Other)
  Sender: FDA-Public Use
  Company Number: DE-COVIDIEN/TYCO HEALTHCARE/MALLINCKRODT-T201301581

PATIENT
  Sex: Male

DRUGS (1)
  1. EXALGO EXTENDED RELEASE [Suspect]
     Indication: PRODUCT USED FOR UNKNOWN INDICATION
     Dosage: 4 MG, TWICE A DAY
     Route: 048

REACTIONS (3)
  - Herpes zoster [Unknown]
  - Hepatic pain [Unknown]
  - Incorrect dose administered [Unknown]
